FAERS Safety Report 7956903-4 (Version None)
Quarter: 2011Q4

REPORT INFORMATION
  Report Type: 
  Country: None (occurrence: None)
  Receive Date: 20111205
  Receipt Date: 20111201
  Transmission Date: 20120403
  Serious: Yes (Hospitalization)
  Sender: FDA-Public Use
  Company Number: US-B.I. PHARMACEUTICALS,INC./RIDGEFIELD-2011-BP-27190BP

PATIENT
  Sex: Male

DRUGS (1)
  1. COMBIVENT [Suspect]

REACTIONS (1)
  - PNEUMONIA [None]
